FAERS Safety Report 23322301 (Version 1)
Quarter: 2023Q4

REPORT INFORMATION
  Report Type: Spontaneous
  Country: FR (occurrence: FR)
  Receive Date: 20231220
  Receipt Date: 20231220
  Transmission Date: 20240109
  Serious: Yes (Other)
  Sender: FDA-Public Use
  Company Number: FR-002147023-NVSC2023FR263337

PATIENT
  Age: 19 Month
  Sex: Male
  Weight: 10 kg

DRUGS (3)
  1. ZOLGENSMA [Suspect]
     Active Substance: ONASEMNOGENE ABEPARVOVEC-XIOI
     Indication: Spinal muscular atrophy
     Dosage: UNK (WEIGHT DOSE)
     Route: 042
     Dates: start: 20231201, end: 20231201
  2. SOLUPRED [Concomitant]
     Indication: Immunomodulatory therapy
     Dosage: 2 MG/KG, QD, (2 MG/KG (20MG) DAILY)
     Route: 042
     Dates: start: 20231130, end: 20231207
  3. SOLUPRED [Concomitant]
     Dosage: UNK (1 MG/KG)
     Route: 048
     Dates: start: 20231208

REACTIONS (2)
  - Thrombocytopenia [Recovered/Resolved]
  - Neutropenia [Unknown]

NARRATIVE: CASE EVENT DATE: 20231206
